FAERS Safety Report 9812700 (Version 1)
Quarter: 2014Q1

REPORT INFORMATION
  Report Type: Spontaneous
  Country: IN (occurrence: IN)
  Receive Date: 20140113
  Receipt Date: 20140113
  Transmission Date: 20141002
  Serious: Yes (Hospitalization)
  Sender: FDA-Public Use
  Company Number: IN-MYLANLABS-2013S1029173

PATIENT
  Age: 38 Year
  Sex: Female

DRUGS (2)
  1. ONDANSETRON [Suspect]
     Indication: PROPHYLAXIS OF NAUSEA AND VOMITING
     Dosage: 4 MG SLOWLY OVER 30 S
     Route: 042
  2. RANITIDINE [Suspect]
     Indication: PROPHYLAXIS OF NAUSEA AND VOMITING
     Dosage: 50 MG
     Route: 030

REACTIONS (1)
  - Cardiac arrest [Recovered/Resolved]
